FAERS Safety Report 22213575 (Version 2)
Quarter: 2023Q2

REPORT INFORMATION
  Report Type: Spontaneous
  Country: KR (occurrence: None)
  Receive Date: 20230414
  Receipt Date: 20230420
  Transmission Date: 20230722
  Serious: Yes (Hospitalization)
  Sender: FDA-Public Use
  Company Number: 2023A070648

PATIENT
  Age: 22 Year
  Sex: Female

DRUGS (3)
  1. NEXIUM [Suspect]
     Active Substance: ESOMEPRAZOLE MAGNESIUM
     Route: 042
  2. NEXIUM [Concomitant]
     Active Substance: ESOMEPRAZOLE MAGNESIUM
     Route: 048
  3. HARTMAN-DEX(LACTATE RINGER^S SOLUTION + DEXTROSE) [Concomitant]

REACTIONS (5)
  - Inflammation [Unknown]
  - Thrombosis [Unknown]
  - Generalised oedema [Unknown]
  - Paraesthesia [Unknown]
  - Product preparation issue [Unknown]
